FAERS Safety Report 24417350 (Version 1)
Quarter: 2024Q4

REPORT INFORMATION
  Report Type: Spontaneous
  Country: AU (occurrence: AU)
  Receive Date: 20241009
  Receipt Date: 20241009
  Transmission Date: 20250115
  Serious: Yes (Other)
  Sender: FERRING
  Company Number: AU-MLMSERVICE-20240920-PI201140-00272-1

PATIENT

DRUGS (6)
  1. PROGESTERONE [Suspect]
     Active Substance: PROGESTERONE
     Dosage: UNK
     Route: 067
  2. PROGESTERONE [Suspect]
     Active Substance: PROGESTERONE
     Indication: In vitro fertilisation
     Dosage: UNK
     Route: 048
  3. PROGESTERONE [Suspect]
     Active Substance: PROGESTERONE
     Indication: In vitro fertilisation
     Dosage: UNK
     Route: 030
  4. CETIRIZINE [Concomitant]
     Active Substance: CETIRIZINE HYDROCHLORIDE
     Indication: Chronic spontaneous urticaria
     Dosage: UNK, EVERY OTHER DAY
  5. CETIRIZINE [Concomitant]
     Active Substance: CETIRIZINE HYDROCHLORIDE
     Indication: Mechanical urticaria
  6. THYROXINE [Concomitant]
     Active Substance: LEVOTHYROXINE
     Indication: Papillary thyroid cancer
     Dosage: UNK

REACTIONS (1)
  - Autoimmune dermatitis [Recovered/Resolved]
